FAERS Safety Report 8150780 (Version 4)
Quarter: 2012Q4

REPORT INFORMATION
  Report Type: 
  Country: US (occurrence: US)
  Receive Date: 20110922
  Receipt Date: 20121115
  Transmission Date: 20130627
  Serious: Yes (Other)
  Sender: FDA-Public Use
  Company Number: US-ASTRAZENECA-2011SE08361

PATIENT
  Age: 654 Month
  Sex: Female
  Weight: 49.9 kg

DRUGS (10)
  1. SEROQUEL [Suspect]
     Indication: BIPOLAR DISORDER
     Route: 048
  2. SEROQUEL [Suspect]
     Indication: POST-TRAUMATIC STRESS DISORDER
     Route: 048
  3. SEROQUEL [Suspect]
     Indication: BIPOLAR DISORDER
     Route: 048
  4. SEROQUEL [Suspect]
     Indication: POST-TRAUMATIC STRESS DISORDER
     Route: 048
  5. SEROQUEL [Suspect]
     Indication: BIPOLAR DISORDER
     Route: 048
     Dates: end: 2012
  6. SEROQUEL [Suspect]
     Indication: POST-TRAUMATIC STRESS DISORDER
     Route: 048
     Dates: end: 2012
  7. SEROQUEL [Suspect]
     Indication: BIPOLAR DISORDER
     Dosage: GENERIC
     Route: 048
     Dates: start: 2012
  8. SEROQUEL [Suspect]
     Indication: POST-TRAUMATIC STRESS DISORDER
     Dosage: GENERIC
     Route: 048
     Dates: start: 2012
  9. XANAX [Concomitant]
     Indication: ANXIETY
  10. WELLBUTRIN XL [Concomitant]
     Indication: ANXIETY
     Route: 048

REACTIONS (23)
  - Suicidal ideation [Unknown]
  - Adverse event [Unknown]
  - Anxiety [Unknown]
  - Mental disorder [Unknown]
  - Mania [Unknown]
  - Memory impairment [Unknown]
  - Adverse drug reaction [Unknown]
  - Adverse drug reaction [Unknown]
  - Insomnia [Unknown]
  - Malaise [Unknown]
  - Disorientation [Unknown]
  - Confusional state [Unknown]
  - Depression [Unknown]
  - Mood swings [Unknown]
  - Arthritis [Unknown]
  - Body height decreased [Unknown]
  - Abnormal behaviour [Unknown]
  - Abnormal behaviour [Unknown]
  - Amnesia [Unknown]
  - Psychomotor hyperactivity [Unknown]
  - Drug dose omission [Unknown]
  - Off label use [Unknown]
  - Drug ineffective [Unknown]
